FAERS Safety Report 15591733 (Version 1)
Quarter: 2018Q4

REPORT INFORMATION
  Report Type: Spontaneous
  Country: US (occurrence: US)
  Receive Date: 20181107
  Receipt Date: 20181107
  Transmission Date: 20190205
  Serious: Yes (Hospitalization)
  Sender: FDA-Public Use
  Company Number: US-PFIZER INC-2018450294

PATIENT
  Age: 45 Year
  Sex: Male

DRUGS (15)
  1. XALKORI [Suspect]
     Active Substance: CRIZOTINIB
     Indication: CELLULITIS
  2. XALKORI [Suspect]
     Active Substance: CRIZOTINIB
     Indication: LUNG NEOPLASM MALIGNANT
  3. CARBOPLATIN. [Concomitant]
     Active Substance: CARBOPLATIN
     Dosage: 579 MG, UNK (5 AUC)
     Route: 042
     Dates: start: 20140826, end: 20141028
  4. DIPHENHYDRAMINE. [Concomitant]
     Active Substance: DIPHENHYDRAMINE
     Dosage: 50 MG, UNK
     Route: 042
     Dates: start: 20140826, end: 20141028
  5. FOLIC ACID. [Concomitant]
     Active Substance: FOLIC ACID
     Dosage: 1 MG, UNK
     Route: 048
     Dates: start: 20140826, end: 20141028
  6. DEXAMETHASONE. [Concomitant]
     Active Substance: DEXAMETHASONE
     Dosage: 10 MG, UNK
     Route: 042
     Dates: start: 20140826, end: 20141028
  7. PALONOSETRON. [Concomitant]
     Active Substance: PALONOSETRON HYDROCHLORIDE
     Dosage: 0.25 MG, UNK
     Route: 042
     Dates: start: 20140826, end: 20141028
  8. HYDROCORTISONE. [Concomitant]
     Active Substance: HYDROCORTISONE
     Dosage: 100 MG, UNK
     Route: 042
     Dates: start: 20140826, end: 20141028
  9. BEVACIZUMAB. [Concomitant]
     Active Substance: BEVACIZUMAB
     Dosage: 820 MG, UNK
     Route: 042
     Dates: start: 20140826, end: 20141028
  10. DEXAMETHASONE. [Concomitant]
     Active Substance: DEXAMETHASONE
     Dosage: 4 MG, UNK
     Route: 048
     Dates: start: 20140828, end: 20141028
  11. METHYLPREDNISOLONE. [Concomitant]
     Active Substance: METHYLPREDNISOLONE
     Dosage: 100 MG, UNK
     Route: 042
     Dates: start: 20140828, end: 20141028
  12. XALKORI [Suspect]
     Active Substance: CRIZOTINIB
     Indication: CELLULITIS
     Dosage: 250 MG, 2X/DAY
     Dates: start: 20141202, end: 20150501
  13. XALKORI [Suspect]
     Active Substance: CRIZOTINIB
     Indication: NON-SMALL CELL LUNG CANCER
     Dosage: 500 MG, 2X/DAY
  14. PEMETREXED. [Concomitant]
     Active Substance: PEMETREXED
     Dosage: 790 MG, UNK
     Dates: start: 20140826, end: 20141028
  15. CYANOCOBALAMIN. [Concomitant]
     Active Substance: CYANOCOBALAMIN
     Dosage: UNK
     Route: 030
     Dates: start: 20141028, end: 20141028

REACTIONS (6)
  - Erythema [Unknown]
  - Oedema [Unknown]
  - Pain [Unknown]
  - Neoplasm progression [Unknown]
  - Oedema peripheral [Unknown]
  - Nodule [Unknown]

NARRATIVE: CASE EVENT DATE: 201705
